FAERS Safety Report 20570255 (Version 1)
Quarter: 2022Q1

REPORT INFORMATION
  Report Type: Spontaneous
  Country: AU (occurrence: AU)
  Receive Date: 20220309
  Receipt Date: 20220309
  Transmission Date: 20220423
  Serious: Yes (Hospitalization, Other)
  Sender: FDA-Public Use
  Company Number: AU-ALKEM LABORATORIES LIMITED-AU-ALKEM-2022-01700

PATIENT
  Age: 56 Year
  Sex: Male

DRUGS (2)
  1. AMLODIPINE BESYLATE [Suspect]
     Active Substance: AMLODIPINE BESYLATE
     Indication: Product used for unknown indication
     Dosage: UNK
     Route: 065
  2. ATORVASTATIN CALCIUM [Suspect]
     Active Substance: ATORVASTATIN CALCIUM
     Indication: Product used for unknown indication
     Dosage: UNK
     Route: 065

REACTIONS (18)
  - Hospitalisation [Unknown]
  - Bradycardia [Unknown]
  - Brain injury [Unknown]
  - Cardiac dysfunction [Unknown]
  - Cardiogenic shock [Unknown]
  - Cardiomyopathy [Unknown]
  - Delirium [Unknown]
  - Encephalitis toxic [Unknown]
  - Hypothermia [Unknown]
  - Hypoxia [Unknown]
  - Mental impairment [Unknown]
  - Pericardial effusion [Unknown]
  - Respiratory failure [Unknown]
  - Septic shock [Unknown]
  - Coma scale abnormal [Unknown]
  - Drug effect less than expected [Unknown]
  - Hypotension [Unknown]
  - Overdose [Unknown]
